FAERS Safety Report 6359006-8 (Version None)
Quarter: 2009Q3

REPORT INFORMATION
  Report Type: 
  Country: None (occurrence: None)
  Receive Date: 20090916
  Receipt Date: 20090908
  Transmission Date: 20100115
  Serious: Yes (Other)
  Sender: FDA-Public Use
  Company Number: US-JNJCH-2009024246

PATIENT
  Age: 19 Year
  Sex: Male

DRUGS (1)
  1. LUDENS THROAT DROPS WILD CHERRY [Suspect]
     Indication: OROPHARYNGEAL PAIN
     Dosage: TEXT:UNSPECIFIED
     Route: 048

REACTIONS (2)
  - DEPENDENCE [None]
  - VOMITING [None]
